FAERS Safety Report 24711793 (Version 1)
Quarter: 2024Q4

REPORT INFORMATION
  Report Type: Report from Study
  Country: US (occurrence: US)
  Receive Date: 20241209
  Receipt Date: 20241209
  Transmission Date: 20250115
  Serious: Yes (Hospitalization)
  Sender: AMGEN
  Company Number: US-AMGEN-USASL2024217681

PATIENT
  Age: 61 Year
  Sex: Female

DRUGS (3)
  1. IMDELLTRA [Suspect]
     Active Substance: TARLATAMAB-DLLE
     Indication: Small cell lung cancer extensive stage
     Dosage: 1 MILLIGRAM, STEP UP DOSE
     Route: 065
     Dates: start: 20241028, end: 20241028
  2. IMDELLTRA [Suspect]
     Active Substance: TARLATAMAB-DLLE
     Dosage: UNK, SECOND DOSE
     Route: 065
     Dates: start: 202411, end: 202411
  3. IMDELLTRA [Suspect]
     Active Substance: TARLATAMAB-DLLE
     Dosage: UNK, THIRD DOSE
     Route: 065
     Dates: start: 20241122

REACTIONS (10)
  - Illness [Unknown]
  - Headache [Unknown]
  - Neck pain [Unknown]
  - Pyrexia [Unknown]
  - Nausea [Unknown]
  - Decreased appetite [Unknown]
  - Anxiety [Unknown]
  - Weight decreased [Unknown]
  - Hypertension [Unknown]
  - Inappropriate schedule of product administration [Unknown]

NARRATIVE: CASE EVENT DATE: 20240101
